FAERS Safety Report 5141949-4 (Version None)
Quarter: 2006Q4

REPORT INFORMATION
  Report Type: 
  Country: None (occurrence: None)
  Receive Date: 20061102
  Receipt Date: 20060927
  Transmission Date: 20070319
  Serious: Yes (Other)
  Sender: FDA-Public Use
  Company Number: PHBS2006JP15180

PATIENT
  Age: 22 Year
  Sex: Male

DRUGS (5)
  1. SANDIMMUNE [Suspect]
     Indication: UNRELATED DONOR BONE MARROW TRANSPLANTATION THERAPY
     Dosage: 3 MG/KG/DAY
     Route: 041
     Dates: start: 20060309, end: 20060410
  2. METHOTREXATE SODIUM [Concomitant]
     Indication: UNRELATED DONOR BONE MARROW TRANSPLANTATION THERAPY
     Dosage: UNK, UNK
     Route: 065
     Dates: start: 20060301
  3. BUSULPHAN [Concomitant]
     Indication: UNRELATED DONOR BONE MARROW TRANSPLANTATION THERAPY
  4. CYCLOPHOSPHAMIDE [Concomitant]
     Indication: UNRELATED DONOR BONE MARROW TRANSPLANTATION THERAPY
  5. BLOOD TRANSFUSION, AUXILIARY PRODUCTS [Concomitant]

REACTIONS (11)
  - ACUTE GRAFT VERSUS HOST DISEASE IN SKIN [None]
  - ASCITES [None]
  - BLOOD BILIRUBIN INCREASED [None]
  - BLOOD CREATININE INCREASED [None]
  - HEPATOMEGALY [None]
  - PLATELET COUNT DECREASED [None]
  - RASH [None]
  - REFRACTORINESS TO PLATELET TRANSFUSION [None]
  - RENAL IMPAIRMENT [None]
  - VENOOCCLUSIVE LIVER DISEASE [None]
  - WEIGHT INCREASED [None]
